FAERS Safety Report 9363573 (Version 1)
Quarter: 2013Q2

REPORT INFORMATION
  Report Type: Spontaneous
  Country: IN (occurrence: None)
  Receive Date: 20130618
  Receipt Date: 20130618
  Transmission Date: 20140414
  Serious: Yes (Other)
  Sender: FDA-Public Use
  Company Number: AUR-APL-2013-04948

PATIENT
  Age: 22 Year
  Sex: Female

DRUGS (5)
  1. QUETIAPINE (QUETIAPINE) [Suspect]
     Indication: SCHIZOPHRENIA, PARANOID TYPE
  2. RISPERIDONE (RISPERIDONE) [Suspect]
     Indication: SCHIZOPHRENIA, PARANOID TYPE
     Dosage: STOPPED
  3. OLANZAPINE (OLANZAPINE) [Suspect]
     Indication: SCHIZOPHRENIA, PARANOID TYPE
     Dosage: UP TO 20 MG/DAY, UNKNOWN
  4. TRIFLUOPERAZINE [Suspect]
     Indication: SCHIZOPHRENIA, PARANOID TYPE
     Dosage: UP TO 10 MG/DAY, UNKNOWN - STOPPED
  5. TRIHEXYPHENIDYL (TRIHEXYPHENIDYL) [Concomitant]

REACTIONS (7)
  - Akathisia [None]
  - Pyrexia [None]
  - Muscle rigidity [None]
  - Tremor [None]
  - Tachycardia [None]
  - Neuroleptic malignant syndrome [None]
  - Restlessness [None]
